FAERS Safety Report 8824579 (Version 4)
Quarter: 2013Q1

REPORT INFORMATION
  Report Type: Spontaneous
  Country: JP (occurrence: JP)
  Receive Date: 20121004
  Receipt Date: 20130319
  Transmission Date: 20140127
  Serious: Yes (Death, Hospitalization)
  Sender: FDA-Public Use
  Company Number: JP-EISAI INC-E7389-03074-SPO-JP

PATIENT
  Age: 44 Year
  Sex: Female

DRUGS (2)
  1. HALAVEN [Suspect]
     Indication: BREAST CANCER RECURRENT
     Route: 041
     Dates: start: 20120801, end: 20120801
  2. HALAVEN [Suspect]
     Route: 041
     Dates: start: 20120718, end: 20120718

REACTIONS (5)
  - Disseminated intravascular coagulation [Fatal]
  - Infection [Not Recovered/Not Resolved]
  - Stomatitis [Unknown]
  - Neutropenia [Recovered/Resolved]
  - Pyrexia [Unknown]
